FAERS Safety Report 21843470 (Version 1)
Quarter: 2023Q1

REPORT INFORMATION
  Report Type: Spontaneous
  Country: GB (occurrence: GB)
  Receive Date: 20230110
  Receipt Date: 20230110
  Transmission Date: 20230418
  Serious: Yes (Hospitalization)
  Sender: FDA-Public Use
  Company Number: None

PATIENT
  Age: 52 Year
  Sex: Female

DRUGS (3)
  1. ATORVASTATIN [Suspect]
     Active Substance: ATORVASTATIN
     Indication: Product used for unknown indication
     Dosage: AT NIGHT
  2. FLUOXETINE [Suspect]
     Active Substance: FLUOXETINE HYDROCHLORIDE
     Indication: Product used for unknown indication
     Dosage: AT NIGHT
  3. HERBALS [Suspect]
     Active Substance: HERBALS
     Indication: Product used for unknown indication
     Dosage: HERBAL MEDICINE CONTAINING:  GINGSENG, GINKGO, TRIBULUS TERRESTRIS, MACA EXTRACT AND BEETROOT

REACTIONS (3)
  - Cholelithiasis [Unknown]
  - Abdominal pain upper [Recovered/Resolved with Sequelae]
  - Liver function test abnormal [Unknown]

NARRATIVE: CASE EVENT DATE: 20221206
